FAERS Safety Report 17296755 (Version 2)
Quarter: 2020Q1

REPORT INFORMATION
  Report Type: Spontaneous
  Country: US (occurrence: US)
  Receive Date: 20200122
  Receipt Date: 20200221
  Transmission Date: 20200409
  Serious: No
  Sender: FDA-Public Use
  Company Number: US-SHIRE-US202002024

PATIENT
  Sex: Female
  Weight: 49.89 kg

DRUGS (4)
  1. XIIDRA [Suspect]
     Active Substance: LIFITEGRAST
     Dosage: 0.05 PERCENT, UNKNOWN
     Route: 047
     Dates: start: 20200113, end: 20200115
  2. REFRESH OPTIVE MEGA 3 [Concomitant]
     Indication: PRODUCT USED FOR UNKNOWN INDICATION
  3. XIIDRA [Suspect]
     Active Substance: LIFITEGRAST
     Indication: DRY EYE
     Dosage: 5 PERCENT
     Route: 047
  4. RESTASIS [Concomitant]
     Active Substance: CYCLOSPORINE
     Indication: PRODUCT USED FOR UNKNOWN INDICATION

REACTIONS (3)
  - Heart rate increased [Unknown]
  - Gastrointestinal disorder [Unknown]
  - Malaise [Unknown]
